FAERS Safety Report 6727599-4 (Version None)
Quarter: 2010Q2

REPORT INFORMATION
  Report Type: 
  Country: None (occurrence: None)
  Receive Date: 20100517
  Receipt Date: 20100414
  Transmission Date: 20101027
  Serious: No
  Sender: FDA-Public Use
  Company Number: US-BAYER-201019881NA

PATIENT
  Age: 45 Year
  Sex: Female
  Weight: 91 kg

DRUGS (6)
  1. ULTRAVIST 300 [Suspect]
     Indication: COMPUTERISED TOMOGRAM
     Dosage: TOTAL DAILY DOSE: 120 ML  UNIT DOSE: 200 ML
     Route: 042
     Dates: start: 20100414, end: 20100414
  2. ULTRAVIST 300 [Suspect]
     Dosage: TOTAL DAILY DOSE: 20 ML  UNIT DOSE: 200 ML
     Route: 042
     Dates: start: 20100414, end: 20100414
  3. PRAVASTATIN [Concomitant]
  4. ORTHO [Concomitant]
  5. PREDNISONE [Concomitant]
     Dosage: DOSE: 24, 12 AND 1 HOUR BEFORE SCAN
     Route: 048
  6. BENADRYL [Concomitant]
     Dosage: 1 HR BEFORE SCAN
     Route: 048
     Dates: start: 20100414, end: 20100414

REACTIONS (2)
  - COUGH [None]
  - THROAT TIGHTNESS [None]
